FAERS Safety Report 20064675 (Version 2)
Quarter: 2021Q4

REPORT INFORMATION
  Report Type: Other
  Country: RU (occurrence: None)
  Receive Date: 20211112
  Receipt Date: 20211123
  Transmission Date: 20220303
  Serious: Yes (Hospitalization, Other)
  Sender: FDA-Public Use
  Company Number: RU-Merck Healthcare KGaA-9277434

PATIENT
  Age: 57 Year
  Sex: Female
  Weight: 79 kg

DRUGS (8)
  1. METFORMIN [Suspect]
     Active Substance: METFORMIN HYDROCHLORIDE
     Indication: Type 2 diabetes mellitus
     Dates: start: 2017
  2. METFORMIN [Suspect]
     Active Substance: METFORMIN HYDROCHLORIDE
     Dosage: DOSE INCREASED
     Dates: start: 202009
  3. BISOPROLOL [Suspect]
     Active Substance: BISOPROLOL
     Indication: Hypertension
  4. GLICLAZIDE [Concomitant]
     Active Substance: GLICLAZIDE
     Indication: Type 2 diabetes mellitus
     Dates: start: 2018
  5. SITAGLIPTIN [Concomitant]
     Active Substance: SITAGLIPTIN
     Indication: Type 2 diabetes mellitus
  6. BETAMETHASONE [Concomitant]
     Active Substance: BETAMETHASONE
     Indication: Patellofemoral pain syndrome
     Dates: start: 2020
  7. HYALURONIC ACID [Concomitant]
     Active Substance: HYALURONIC ACID
     Indication: Patellofemoral pain syndrome
     Dates: start: 2020
  8. SUBETTA [Concomitant]
     Indication: Type 2 diabetes mellitus
     Route: 048

REACTIONS (9)
  - Diabetes mellitus inadequate control [Unknown]
  - Diabetic macroangiopathy [Unknown]
  - Diabetic neuropathy [Unknown]
  - Diabetic nephropathy [Unknown]
  - Chronic kidney disease [Unknown]
  - Non-alcoholic steatohepatitis [Unknown]
  - Blood pressure increased [Unknown]
  - Hypoglycaemia [Unknown]
  - Arteriosclerosis [Unknown]

NARRATIVE: CASE EVENT DATE: 20201001
